FAERS Safety Report 15411526 (Version 1)
Quarter: 2018Q3

REPORT INFORMATION
  Report Type: Spontaneous
  Country: US (occurrence: US)
  Receive Date: 20180920
  Receipt Date: 20180920
  Transmission Date: 20181010
  Serious: No
  Sender: FDA-Public Use
  Company Number: None

PATIENT
  Age: 81 Year
  Sex: Female
  Weight: 92.53 kg

DRUGS (3)
  1. PRADAXA [Concomitant]
     Active Substance: DABIGATRAN ETEXILATE MESYLATE
  2. SIMVASTATIN 20MG GENERIC FOR ZOCOR [Suspect]
     Active Substance: SIMVASTATIN
     Indication: BLOOD CHOLESTEROL INCREASED
     Dosage: ?          QUANTITY:20 MG MILLIGRAM(S);?
     Route: 048
     Dates: start: 20180813, end: 20180818
  3. LEVOTHROID [Concomitant]
     Active Substance: LEVOTHYROXINE SODIUM

REACTIONS (3)
  - Abdominal discomfort [None]
  - Nausea [None]
  - Product substitution issue [None]

NARRATIVE: CASE EVENT DATE: 20180813
